FAERS Safety Report 5126769-9 (Version None)
Quarter: 2006Q4

REPORT INFORMATION
  Report Type: 
  Country: None (occurrence: None)
  Receive Date: 20061013
  Receipt Date: 20060922
  Transmission Date: 20070319
  Serious: Yes (Life-Threatening, Other)
  Sender: FDA-Public Use
  Company Number: GB-BRISTOL-MYERS SQUIBB COMPANY-13518741

PATIENT
  Age: 56 Year
  Sex: Male

DRUGS (3)
  1. ABILIFY [Suspect]
     Indication: SCHIZOAFFECTIVE DISORDER
     Dosage: DOSE INCREASED ON UNKNOWN DATE TO 15MG.
     Dates: start: 20060413, end: 20060515
  2. OLANZAPINE [Concomitant]
     Dates: end: 20060413
  3. LITHIUM CARBONATE [Concomitant]
     Indication: MOOD SWINGS
     Route: 048

REACTIONS (3)
  - DRUG INEFFECTIVE [None]
  - PSYCHOTIC DISORDER [None]
  - SELF INJURIOUS BEHAVIOUR [None]
